FAERS Safety Report 4601350-6 (Version None)
Quarter: 2005Q1

REPORT INFORMATION
  Report Type: 
  Country: None (occurrence: None)
  Receive Date: 20050308
  Receipt Date: 20050218
  Transmission Date: 20050727
  Serious: Yes (Hospitalization)
  Sender: FDA-Public Use
  Company Number: US-AMGEN-US115221

PATIENT
  Sex: Male

DRUGS (13)
  1. NEUPOGEN [Suspect]
     Indication: MYELODYSPLASTIC SYNDROME
     Route: 058
     Dates: start: 20050209, end: 20050214
  2. PROCRIT [Concomitant]
     Dates: start: 20031024, end: 20050214
  3. ISOSORBIDE [Concomitant]
  4. GLIPIZIDE [Concomitant]
  5. FOLIC ACID [Concomitant]
  6. ASPIRIN [Concomitant]
  7. VITAMIN B6 [Concomitant]
  8. LEXAPRO [Concomitant]
  9. MULTIVITAMIN [Concomitant]
  10. VITAMIN B-12 [Concomitant]
  11. COREG [Concomitant]
     Route: 048
  12. MEGACE [Concomitant]
  13. MEDROL [Concomitant]

REACTIONS (1)
  - CUTANEOUS VASCULITIS [None]
